FAERS Safety Report 15312353 (Version 1)
Quarter: 2018Q3

REPORT INFORMATION
  Report Type: Spontaneous
  Country: US (occurrence: US)
  Receive Date: 20180823
  Receipt Date: 20180823
  Transmission Date: 20181010
  Serious: No
  Sender: FDA-Public Use
  Company Number: US-BAUSCH-BL-2018-022532

PATIENT
  Age: 76 Year
  Sex: Female

DRUGS (1)
  1. LUMIFY [Suspect]
     Active Substance: BRIMONIDINE TARTRATE
     Indication: OCULAR HYPERAEMIA
     Dosage: ONE DROP IN EACH EYE, USED ONLY ON ONE OCCASION
     Route: 047
     Dates: start: 20180806, end: 20180806

REACTIONS (5)
  - Ocular hyperaemia [Unknown]
  - Feeling abnormal [Unknown]
  - Visual impairment [Unknown]
  - Eye disorder [Unknown]
  - Eye swelling [Not Recovered/Not Resolved]

NARRATIVE: CASE EVENT DATE: 201808
